FAERS Safety Report 10180868 (Version 1)
Quarter: 2014Q2

REPORT INFORMATION
  Report Type: Spontaneous
  Country: US (occurrence: US)
  Receive Date: 20140519
  Receipt Date: 20140519
  Transmission Date: 20141212
  Serious: No
  Sender: FDA-Public Use
  Company Number: US-AMGEN INC.-USASP2014008402

PATIENT
  Age: 59 Year
  Sex: Female

DRUGS (5)
  1. PROLIA [Suspect]
     Indication: OSTEOPOROSIS POSTMENOPAUSAL
     Dosage: UNK
     Route: 065
     Dates: start: 20140102
  2. PLAQUENIL                          /00072602/ [Concomitant]
     Dosage: 200 MG, BID
  3. LEFLUNOMIDE [Concomitant]
     Dosage: 20 MG, QD
  4. PANTOPRAZOLE [Concomitant]
     Dosage: 40 MG, QD
  5. CALCIUM WITH VITAMIN D             /00944201/ [Concomitant]

REACTIONS (1)
  - Sciatica [Unknown]
